FAERS Safety Report 7444479-X (Version None)
Quarter: 2011Q2

REPORT INFORMATION
  Report Type: 
  Country: None (occurrence: None)
  Receive Date: 20110427
  Receipt Date: 20110427
  Transmission Date: 20111010
  Serious: No
  Sender: FDA-Public Use
  Company Number: None

PATIENT
  Age: 37 Year
  Sex: Female
  Weight: 52.1637 kg

DRUGS (1)
  1. MIRENA [Suspect]
     Indication: CONTRACEPTION

REACTIONS (2)
  - HAEMORRHAGE [None]
  - ABDOMINAL PAIN [None]
